FAERS Safety Report 6574107-7 (Version None)
Quarter: 2010Q1

REPORT INFORMATION
  Report Type: 
  Country: None (occurrence: None)
  Receive Date: 20100201
  Receipt Date: 20100118
  Transmission Date: 20100710
  Serious: Yes (Hospitalization)
  Sender: FDA-Public Use
  Company Number: CERZ-1001116

PATIENT
  Age: 49 Year
  Sex: Female
  Weight: 74 kg

DRUGS (1)
  1. CEREZYME [Suspect]
     Indication: GAUCHER'S DISEASE
     Dosage: 4600 U, QW, INTRAVENOUS
     Route: 042
     Dates: start: 19930301

REACTIONS (11)
  - ADVERSE EVENT [None]
  - ANAEMIA [None]
  - BLOOD ERYTHROPOIETIN INCREASED [None]
  - BONE DISORDER [None]
  - DRUG INEFFECTIVE [None]
  - EXFOLIATIVE RASH [None]
  - MYELOFIBROSIS [None]
  - POST PROCEDURAL INFECTION [None]
  - PRURITUS [None]
  - RASH ERYTHEMATOUS [None]
  - SELECTIVE IGA IMMUNODEFICIENCY [None]
